FAERS Safety Report 9254549 (Version 1)
Quarter: 2013Q2

REPORT INFORMATION
  Report Type: Spontaneous
  Country: US (occurrence: US)
  Receive Date: 20130425
  Receipt Date: 20130425
  Transmission Date: 20140414
  Serious: No
  Sender: FDA-Public Use
  Company Number: US-GLAXOSMITHKLINE-A1017893A

PATIENT
  Age: 64 Year
  Sex: Male

DRUGS (2)
  1. HORIZANT [Suspect]
     Indication: RESTLESS LEGS SYNDROME
     Dosage: 600MG PER DAY
     Route: 048
     Dates: start: 20130325
  2. NO CONCURRENT MEDICATION [Concomitant]

REACTIONS (7)
  - Poor quality sleep [Not Recovered/Not Resolved]
  - Tremor [Not Recovered/Not Resolved]
  - Local swelling [Not Recovered/Not Resolved]
  - Expired drug administered [Not Recovered/Not Resolved]
  - Malaise [Not Recovered/Not Resolved]
  - Hangover [Not Recovered/Not Resolved]
  - Visual impairment [Not Recovered/Not Resolved]
